FAERS Safety Report 21156841 (Version 1)
Quarter: 2022Q3

REPORT INFORMATION
  Report Type: Spontaneous
  Country: US (occurrence: None)
  Receive Date: 20220801
  Receipt Date: 20220801
  Transmission Date: 20221027
  Serious: No
  Sender: FDA-Public Use
  Company Number: None

PATIENT
  Sex: Male

DRUGS (1)
  1. HUMIRA [Suspect]
     Active Substance: ADALIMUMAB
     Indication: Myocarditis
     Dosage: 40MG EVERY 14 DAYS UNDER THE SKIN?
     Route: 058

REACTIONS (1)
  - Cerebrovascular accident [None]
